FAERS Safety Report 15211848 (Version 1)
Quarter: 2018Q3

REPORT INFORMATION
  Report Type: Spontaneous
  Country: ES (occurrence: ES)
  Receive Date: 20180729
  Receipt Date: 20180729
  Transmission Date: 20181010
  Serious: Yes (Death, Other)
  Sender: FDA-Public Use
  Company Number: PHHY2018ES056742

PATIENT
  Age: 61 Year
  Sex: Male

DRUGS (1)
  1. TACROLIMUS. [Suspect]
     Active Substance: TACROLIMUS
     Indication: RENAL TRANSPLANT
     Dosage: 3 OT, QD
     Route: 065
     Dates: start: 20170228

REACTIONS (1)
  - Gastric neoplasm [Fatal]

NARRATIVE: CASE EVENT DATE: 20171004
